FAERS Safety Report 4878915-X (Version None)
Quarter: 2005Q4

REPORT INFORMATION
  Report Type: 
  Country: None (occurrence: None)
  Receive Date: 20051209
  Receipt Date: 20050422
  Transmission Date: 20060501
  Serious: Yes (Hospitalization, Other)
  Sender: FDA-Public Use
  Company Number: USA-2003-0005606

PATIENT
  Age: 31 Year
  Sex: Male

DRUGS (13)
  1. OXYCONTIN [Suspect]
     Indication: PAIN
     Dosage: 20 MG, BID, ORAL
     Route: 048
     Dates: start: 19980822, end: 19990421
  2. OXYCODONE HCL [Suspect]
     Indication: PAIN
     Dosage: 5 MG, PRN, ORAL
     Route: 048
     Dates: start: 19980101
  3. DURAGESIC-100 [Concomitant]
  4. ZOLOFT [Concomitant]
  5. NEURONTIN [Concomitant]
  6. PROMETHAZINE [Concomitant]
  7. ACETAMINOPHEN AND HYDROCODONE BITARTRATE [Concomitant]
  8. STADOL [Concomitant]
  9. ZOMIG [Concomitant]
  10. NEXIUM [Concomitant]
  11. ZANTAC [Concomitant]
  12. LODINE [Concomitant]
  13. PERCOCET [Concomitant]

REACTIONS (33)
  - ABDOMINAL PAIN [None]
  - AGITATION [None]
  - ANHEDONIA [None]
  - ANXIETY [None]
  - ASTHENIA [None]
  - CHILLS [None]
  - CONSTIPATION [None]
  - COUGH [None]
  - DECREASED APPETITE [None]
  - DEPRESSION [None]
  - DIARRHOEA [None]
  - DRUG ABUSER [None]
  - DRUG DEPENDENCE [None]
  - DRUG WITHDRAWAL SYNDROME [None]
  - HEART RATE IRREGULAR [None]
  - HYPERHIDROSIS [None]
  - HYPERTENSION [None]
  - INSOMNIA [None]
  - IRRITABILITY [None]
  - LOSS OF CONSCIOUSNESS [None]
  - MIGRAINE [None]
  - MOOD SWINGS [None]
  - MUSCLE SPASMS [None]
  - NASAL CYST [None]
  - NAUSEA [None]
  - NIGHT SWEATS [None]
  - PALPITATIONS [None]
  - PARAESTHESIA [None]
  - PHARYNGOLARYNGEAL PAIN [None]
  - PYREXIA [None]
  - RASH PAPULAR [None]
  - TREMOR [None]
  - WEIGHT INCREASED [None]
